FAERS Safety Report 25111154 (Version 1)
Quarter: 2025Q1

REPORT INFORMATION
  Report Type: Spontaneous
  Country: JP (occurrence: JP)
  Receive Date: 20250324
  Receipt Date: 20250324
  Transmission Date: 20250409
  Serious: Yes (Death)
  Sender: AMGEN
  Company Number: JP-AMGEN-JPNSP2025054991

PATIENT

DRUGS (1)
  1. OTEZLA [Suspect]
     Active Substance: APREMILAST
     Indication: Psoriasis
     Route: 048

REACTIONS (1)
  - Neoplasm malignant [Fatal]
